FAERS Safety Report 14820909 (Version 1)
Quarter: 2018Q2

REPORT INFORMATION
  Report Type: Spontaneous
  Country: US (occurrence: US)
  Receive Date: 20180427
  Receipt Date: 20180427
  Transmission Date: 20180711
  Serious: No
  Sender: FDA-Public Use
  Company Number: US-PERRIGO-18US002122

PATIENT
  Sex: Female

DRUGS (1)
  1. MICONAZOLE 3 COMBINATION PACK [Suspect]
     Active Substance: MICONAZOLE NITRATE
     Indication: PRODUCT USED FOR UNKNOWN INDICATION
     Dosage: 200 MG, SINGLE
     Route: 067
     Dates: start: 20180220, end: 20180220

REACTIONS (2)
  - Vulvovaginal pruritus [Recovering/Resolving]
  - Vulvovaginal burning sensation [Recovering/Resolving]

NARRATIVE: CASE EVENT DATE: 201802
